FAERS Safety Report 8822491 (Version 1)
Quarter: 2012Q4

REPORT INFORMATION
  Report Type: 
  Country: US (occurrence: US)
  Receive Date: 20121003
  Receipt Date: 20121003
  Transmission Date: 20130627
  Serious: Yes (Hospitalization)
  Sender: FDA-Public Use
  Company Number: US-ELI_LILLY_AND_COMPANY-US201209007932

PATIENT
  Age: 25 Year
  Sex: Male

DRUGS (7)
  1. ZYPREXA [Suspect]
  2. ZYPREXA [Suspect]
     Dosage: 20 mg, qd
     Dates: start: 20120808
  3. ZYPREXA [Suspect]
     Dosage: 40 mg, qd
  4. ZYPREXA [Suspect]
     Dosage: 20 mg, qd
     Dates: start: 201208
  5. TRILEPTAL [Concomitant]
  6. NEXIUM [Concomitant]
  7. LISINOPRIL [Concomitant]

REACTIONS (2)
  - Hospitalisation [Unknown]
  - Prescribed overdose [Unknown]
